FAERS Safety Report 8444133-1 (Version None)
Quarter: 2012Q2

REPORT INFORMATION
  Report Type: 
  Country: None (occurrence: None)
  Receive Date: 20120618
  Receipt Date: 20120605
  Transmission Date: 20120825
  Serious: Yes (Other)
  Sender: FDA-Public Use
  Company Number: US-SHIRE-ALL1-2012-02813

PATIENT
  Age: 63 Year
  Sex: Male

DRUGS (1)
  1. VPRIV [Suspect]
     Indication: GAUCHER'S DISEASE
     Dosage: 400 IU, 1X/2WKS
     Route: 041
     Dates: start: 20110922

REACTIONS (1)
  - BLOOD GLUCOSE INCREASED [None]
